FAERS Safety Report 7773167-5 (Version None)
Quarter: 2011Q3

REPORT INFORMATION
  Report Type: 
  Country: None (occurrence: None)
  Receive Date: 20110922
  Receipt Date: 20100930
  Transmission Date: 20111222
  Serious: No
  Sender: FDA-Public Use
  Company Number: US-ASTRAZENECA-2010SE46400

PATIENT
  Age: 60 Year
  Sex: Female

DRUGS (1)
  1. SEROQUEL XR [Suspect]
     Indication: DEPRESSION
     Route: 048
     Dates: end: 20100930

REACTIONS (3)
  - HEARING IMPAIRED [None]
  - HYPOAESTHESIA [None]
  - HYPOAESTHESIA ORAL [None]
